FAERS Safety Report 14121206 (Version 1)
Quarter: 2017Q4

REPORT INFORMATION
  Report Type: Spontaneous
  Country: PT (occurrence: PT)
  Receive Date: 20171024
  Receipt Date: 20171024
  Transmission Date: 20180321
  Serious: Yes (Other)
  Sender: FDA-Public Use
  Company Number: PT-009507513-1710PRT011678

PATIENT
  Age: 43 Year
  Sex: Female
  Weight: 77 kg

DRUGS (5)
  1. ONDANSETRON [Concomitant]
     Active Substance: ONDANSETRON
     Indication: PROPHYLAXIS OF NAUSEA AND VOMITING
     Dosage: 8 MG, CYCLICAL
     Route: 042
     Dates: start: 20170920
  2. EMEND [Suspect]
     Active Substance: APREPITANT
     Indication: PROPHYLAXIS OF NAUSEA AND VOMITING
     Dosage: 1 DF, QD
     Route: 048
     Dates: start: 20170920, end: 20170921
  3. EPIRUBICIN [Concomitant]
     Active Substance: EPIRUBICIN
     Indication: BREAST NEOPLASM
     Dosage: 172 MG, CYCLICAL
     Route: 042
     Dates: start: 20170920
  4. DEXAMETHASONE. [Concomitant]
     Active Substance: DEXAMETHASONE
     Indication: PROPHYLAXIS OF NAUSEA AND VOMITING
     Dosage: 12 MG, CYCLICAL
     Route: 042
     Dates: start: 20170920
  5. CYCLOPHOSPHAMIDE. [Concomitant]
     Active Substance: CYCLOPHOSPHAMIDE
     Indication: BREAST NEOPLASM
     Dosage: 1146 MG, CYCLICAL
     Route: 042
     Dates: start: 20170920

REACTIONS (6)
  - Dyspnoea [Recovered/Resolved]
  - Pruritus generalised [Recovered/Resolved]
  - Rash generalised [Recovered/Resolved]
  - Tachypnoea [Recovered/Resolved]
  - Anaphylactoid reaction [Recovered/Resolved]
  - Tachycardia [Recovered/Resolved]

NARRATIVE: CASE EVENT DATE: 20170920
